FAERS Safety Report 4338479-6 (Version None)
Quarter: 2004Q1

REPORT INFORMATION
  Report Type: 
  Country: None (occurrence: None)
  Receive Date: 20040329
  Receipt Date: 20040218
  Transmission Date: 20041129
  Serious: No
  Sender: FDA-Public Use
  Company Number: USA040259738

PATIENT
  Age: 49 Year
  Sex: Female

DRUGS (1)
  1. STRATTERA [Suspect]
     Indication: ATTENTION DEFICIT/HYPERACTIVITY DISORDER
     Dosage: 40 MG DAY
     Dates: start: 20040210

REACTIONS (5)
  - BODY TEMPERATURE DECREASED [None]
  - DECREASED APPETITE [None]
  - FEELING COLD [None]
  - MYDRIASIS [None]
  - VISION BLURRED [None]
